FAERS Safety Report 4479890-2 (Version None)
Quarter: 2004Q3

REPORT INFORMATION
  Report Type: 
  Country: None (occurrence: None)
  Receive Date: 20040923
  Receipt Date: 20040729
  Transmission Date: 20050211
  Serious: No
  Sender: FDA-Public Use
  Company Number: USA040669554

PATIENT
  Age: 85 Year
  Sex: Female
  Weight: 56 kg

DRUGS (6)
  1. FORTEO [Suspect]
     Indication: OSTEOPOROSIS
     Dosage: 20 UG DAY
     Dates: start: 20040519
  2. CALCIUM WITH VITAMIN D [Concomitant]
  3. HYDROCHLOROTHIAZIDE [Concomitant]
  4. PROVERA [Concomitant]
  5. ESCLIM (ESTRADIOL) [Concomitant]
  6. ESTRACE [Concomitant]

REACTIONS (5)
  - BLOOD PRESSURE INCREASED [None]
  - DIZZINESS [None]
  - FATIGUE [None]
  - HEADACHE [None]
  - OEDEMA PERIPHERAL [None]
